FAERS Safety Report 17446019 (Version 1)
Quarter: 2020Q1

REPORT INFORMATION
  Report Type: Spontaneous
  Country: DE (occurrence: DE)
  Receive Date: 20200221
  Receipt Date: 20200221
  Transmission Date: 20200409
  Serious: Yes (Life-Threatening, Hospitalization, Other)
  Sender: FDA-Public Use
  Company Number: DE-HIKMA PHARMACEUTICALS USA INC.-DE-H14001-20-50585

PATIENT
  Age: 60 Year
  Sex: Female
  Weight: 79 kg

DRUGS (2)
  1. CEFUROXIME. [Suspect]
     Active Substance: CEFUROXIME
     Indication: ANTIBIOTIC PROPHYLAXIS
     Route: 042
     Dates: start: 20200103, end: 20200103
  2. METRONIDAZOLE. [Concomitant]
     Active Substance: METRONIDAZOLE
     Indication: ANTIBIOTIC PROPHYLAXIS
     Route: 042
     Dates: start: 20200103, end: 20200103

REACTIONS (5)
  - Bronchospasm [Unknown]
  - Anaphylactic shock [Recovered/Resolved]
  - Hypotension [Unknown]
  - Tachycardia [Unknown]
  - Aspiration [Unknown]

NARRATIVE: CASE EVENT DATE: 20200103
